FAERS Safety Report 20199422 (Version 1)
Quarter: 2021Q4

REPORT INFORMATION
  Report Type: Spontaneous
  Country: US (occurrence: US)
  Receive Date: 20211217
  Receipt Date: 20211217
  Transmission Date: 20220303
  Serious: Yes (Other)
  Sender: FDA-Public Use
  Company Number: US-PACIRA-2021000003

PATIENT
  Age: 62 Year
  Sex: Female

DRUGS (1)
  1. EXPAREL [Suspect]
     Active Substance: BUPIVACAINE
     Dosage: NOT PROVIDED
     Route: 065
     Dates: start: 20201209, end: 20201209

REACTIONS (6)
  - Seizure [Unknown]
  - Muscle strain [Unknown]
  - Myalgia [Unknown]
  - Erythema [Unknown]
  - Tremor [Unknown]
  - Rash [Unknown]

NARRATIVE: CASE EVENT DATE: 20201209
